FAERS Safety Report 12713286 (Version 1)
Quarter: 2016Q3

REPORT INFORMATION
  Report Type: Spontaneous
  Country: SE (occurrence: SE)
  Receive Date: 20160902
  Receipt Date: 20160902
  Transmission Date: 20161109
  Serious: Yes (Hospitalization)
  Sender: FDA-Public Use
  Company Number: SE-ASTRAZENECA-2016SE91717

PATIENT
  Age: 69 Year
  Sex: Male

DRUGS (8)
  1. TROMBYL [Concomitant]
     Active Substance: ASPIRIN
  2. EZETROL [Concomitant]
     Active Substance: EZETIMIBE
  3. GLYCERYL TRINITRATE [Concomitant]
     Active Substance: NITROGLYCERIN
  4. FUROSEMIDE. [Concomitant]
     Active Substance: FUROSEMIDE
  5. METOPROLOL. [Concomitant]
     Active Substance: METOPROLOL
  6. LOSARTAN. [Concomitant]
     Active Substance: LOSARTAN
  7. FORXIGA [Suspect]
     Active Substance: DAPAGLIFLOZIN
     Indication: TYPE 2 DIABETES MELLITUS
     Route: 048
     Dates: start: 20141113, end: 20160810
  8. ATORVASTATIN [Concomitant]
     Active Substance: ATORVASTATIN

REACTIONS (2)
  - Diabetic ketoacidosis [Recovered/Resolved]
  - Diarrhoea [Unknown]

NARRATIVE: CASE EVENT DATE: 20160809
